FAERS Safety Report 11686163 (Version 2)
Quarter: 2015Q4

REPORT INFORMATION
  Report Type: Spontaneous
  Country: AU (occurrence: AT)
  Receive Date: 20151030
  Receipt Date: 20151117
  Transmission Date: 20160304
  Serious: Yes (Life-Threatening, Hospitalization, Other)
  Sender: FDA-Public Use
  Company Number: AT-INCYTE CORPORATION-2015IN005468

PATIENT
  Age: 67 Year
  Sex: Male

DRUGS (4)
  1. JAKAFI [Suspect]
     Active Substance: RUXOLITINIB
     Indication: MYELOFIBROSIS
     Dosage: 15 MG, (3 DF IN MORNING AND 2 DF IN EVENING)
     Route: 065
     Dates: start: 20120125, end: 20140822
  2. JAKAFI [Suspect]
     Active Substance: RUXOLITINIB
     Dosage: 20 MG, BID
     Route: 065
  3. JAKAFI [Suspect]
     Active Substance: RUXOLITINIB
     Dosage: 15 MG, BID
     Route: 065
  4. JAKAFI [Suspect]
     Active Substance: RUXOLITINIB
     Dosage: 20 MG, BID (2-0-2)
     Route: 065
     Dates: start: 20141002

REACTIONS (7)
  - Neutropenia [Unknown]
  - Liver abscess [Recovered/Resolved]
  - Lung infection [Unknown]
  - Puncture site haemorrhage [Recovered/Resolved]
  - Hepatic lesion [Unknown]
  - Gastroenteritis salmonella [Recovered/Resolved]
  - Platelet count decreased [Unknown]

NARRATIVE: CASE EVENT DATE: 201408
